FAERS Safety Report 20779190 (Version 6)
Quarter: 2022Q3

REPORT INFORMATION
  Report Type: Spontaneous
  Country: US (occurrence: US)
  Receive Date: 20220503
  Receipt Date: 20220711
  Transmission Date: 20221026
  Serious: Yes (Other)
  Sender: FDA-Public Use
  Company Number: US-PFIZER INC-202200634866

PATIENT
  Age: 39 Year
  Sex: Female
  Weight: 70.748 kg

DRUGS (24)
  1. DEPO-PROVERA [Suspect]
     Active Substance: MEDROXYPROGESTERONE ACETATE
     Indication: Contraception
     Dosage: UNK
     Dates: start: 2012
  2. DEPO-PROVERA [Suspect]
     Active Substance: MEDROXYPROGESTERONE ACETATE
     Dosage: 150 MG/ML, CYCLIC (Q 12-13 WKS X 1 INJECTION)
     Route: 030
  3. DEPO-PROVERA [Suspect]
     Active Substance: MEDROXYPROGESTERONE ACETATE
     Dosage: 150 MG/ML, CYCLIC (Q 12-13 WKS X 5 INJECTION)
     Route: 030
  4. DEPO-PROVERA [Suspect]
     Active Substance: MEDROXYPROGESTERONE ACETATE
     Dosage: 150 MG/ML (5 INJECTIONS)
     Route: 030
     Dates: start: 20140127, end: 20150427
  5. DEPO-PROVERA [Suspect]
     Active Substance: MEDROXYPROGESTERONE ACETATE
     Dosage: 150 MG/ML, CYCLIC (EVERY 12-14 WKS)
     Route: 030
     Dates: start: 20150601, end: 20160530
  6. DEPO-PROVERA [Suspect]
     Active Substance: MEDROXYPROGESTERONE ACETATE
     Dosage: 150 MG/ML, CYCLIC (EVERY 12-14 WKS)
     Route: 030
     Dates: start: 20160711, end: 20170410
  7. DEPO-PROVERA [Suspect]
     Active Substance: MEDROXYPROGESTERONE ACETATE
     Dosage: 150 MG, CYCLIC (EVERY 12-14 WKS)
     Route: 030
     Dates: start: 20161008, end: 20171007
  8. DEPO-PROVERA [Suspect]
     Active Substance: MEDROXYPROGESTERONE ACETATE
     Dosage: 150 MG/ML, CYCLIC (EVERY 12-14 WKS)
     Route: 030
     Dates: start: 20160711, end: 20170410
  9. DEPO-PROVERA [Suspect]
     Active Substance: MEDROXYPROGESTERONE ACETATE
     Dosage: 150 MG/ML, CYCLIC (EVERY 12-14 WEEKS)
     Route: 030
     Dates: start: 20170306
  10. DEPO-PROVERA [Suspect]
     Active Substance: MEDROXYPROGESTERONE ACETATE
     Dosage: 150 MG/ML, CYCLIC (EVERY 12-14 WEEKS)
     Route: 030
     Dates: start: 20170619
  11. DEPO-PROVERA [Suspect]
     Active Substance: MEDROXYPROGESTERONE ACETATE
     Dosage: 150 MG/ML, CYCLIC (EVERY 12-14 WEEKS)
     Route: 030
     Dates: start: 20170925
  12. DEPO-PROVERA [Suspect]
     Active Substance: MEDROXYPROGESTERONE ACETATE
     Dosage: 150 MG/ML, CYCLIC (EVERY 12-14 WEEKS)
     Route: 030
     Dates: start: 20180103, end: 20190103
  13. DEPO-PROVERA [Suspect]
     Active Substance: MEDROXYPROGESTERONE ACETATE
     Dosage: 150 MG, CYCLIC (EVERY 12-14 WEEKS)
     Route: 030
     Dates: start: 20180105
  14. DEPO-PROVERA [Suspect]
     Active Substance: MEDROXYPROGESTERONE ACETATE
     Dosage: 150 MG, CYCLIC (EVERY 12-14 WEEKS)
     Route: 030
     Dates: start: 20180806
  15. DEPO-PROVERA [Suspect]
     Active Substance: MEDROXYPROGESTERONE ACETATE
     Dosage: 150 MG, CYCLIC (EVERY 12-14 WEEKS)
     Route: 030
     Dates: start: 20181113
  16. DEPO-PROVERA [Suspect]
     Active Substance: MEDROXYPROGESTERONE ACETATE
     Dosage: 150 MG, CYCLIC (EVERY 12-14 WEEKS)
     Route: 030
  17. DEPO-PROVERA [Suspect]
     Active Substance: MEDROXYPROGESTERONE ACETATE
     Dosage: 150 MG, CYCLIC (EVERY 12-14 WEEKS)
     Route: 030
     Dates: start: 20190225, end: 20200225
  18. DEPO-PROVERA [Suspect]
     Active Substance: MEDROXYPROGESTERONE ACETATE
     Dosage: 150 MG, CYCLIC (EVERY 12-14 WEEKS)
     Route: 030
     Dates: start: 20190822
  19. DEPO-PROVERA [Suspect]
     Active Substance: MEDROXYPROGESTERONE ACETATE
     Dosage: 150 MG, CYCLIC (EVERY 12-14 WEEKS)
     Route: 030
     Dates: start: 20200114
  20. DEPO-PROVERA [Suspect]
     Active Substance: MEDROXYPROGESTERONE ACETATE
     Dosage: 150 MG, CYCLIC (EVERY 12-14 WEEKS)
     Route: 030
     Dates: start: 20200605, end: 20210605
  21. DEPO-PROVERA [Suspect]
     Active Substance: MEDROXYPROGESTERONE ACETATE
     Dosage: 150 MG, CYCLIC (EVERY 12-14 WEEKS)
     Route: 030
     Dates: start: 20210224
  22. DEPO-PROVERA [Suspect]
     Active Substance: MEDROXYPROGESTERONE ACETATE
     Dosage: 150 MG, CYCLIC (EVERY 12-14 WEEKS)
     Route: 030
     Dates: start: 20210827
  23. DEPO-PROVERA [Suspect]
     Active Substance: MEDROXYPROGESTERONE ACETATE
     Dosage: 150 MG, CYCLIC (EVERY 12-14 WEEKS)
     Route: 030
     Dates: start: 20220128
  24. DEPO-PROVERA [Suspect]
     Active Substance: MEDROXYPROGESTERONE ACETATE
     Dosage: 150 MG, CYCLIC (EVERY 12-14 WEEKS)
     Route: 030
     Dates: start: 20210827

REACTIONS (13)
  - Breast cancer female [Unknown]
  - Emotional disorder [Unknown]
  - Stress [Unknown]
  - Nervousness [Unknown]
  - Alopecia [Unknown]
  - Hypertension [Unknown]
  - Vaginal odour [Unknown]
  - Vaginal haemorrhage [Unknown]
  - Pruritus [Unknown]
  - Pelvic pain [Unknown]
  - Obesity [Unknown]
  - Vulvovaginal mycotic infection [Unknown]
  - Vulvovaginal candidiasis [Unknown]

NARRATIVE: CASE EVENT DATE: 20150309
